FAERS Safety Report 11287847 (Version 1)
Quarter: 2015Q3

REPORT INFORMATION
  Report Type: Spontaneous
  Country: US (occurrence: US)
  Receive Date: 20150721
  Receipt Date: 20150721
  Transmission Date: 20151125
  Serious: No
  Sender: FDA-Public Use
  Company Number: US-UNITED THERAPEUTICS-UNT-2015-001541

PATIENT
  Sex: Male
  Weight: 104.31 kg

DRUGS (4)
  1. REMODULIN [Suspect]
     Active Substance: TREPROSTINIL
     Indication: PULMONARY ARTERIAL HYPERTENSION
     Dosage: 0.09 ?G/KG/MIN, CONTINUING
     Route: 041
     Dates: start: 20130430
  2. REMODULIN [Suspect]
     Active Substance: TREPROSTINIL
     Dosage: 0.09 ?G/KG/MIN, CONTINUING
     Route: 041
     Dates: start: 20130430
  3. SILDENAFIL. [Concomitant]
     Active Substance: SILDENAFIL
     Indication: PRODUCT USED FOR UNKNOWN INDICATION
  4. TRACLEER [Concomitant]
     Active Substance: BOSENTAN
     Indication: PRODUCT USED FOR UNKNOWN INDICATION

REACTIONS (4)
  - Fall [Unknown]
  - Epistaxis [Unknown]
  - Pain [Unknown]
  - Anxiety [Unknown]
